FAERS Safety Report 13876857 (Version 1)
Quarter: 2017Q3

REPORT INFORMATION
  Report Type: Spontaneous
  Country: US (occurrence: None)
  Receive Date: 20170814
  Receipt Date: 20170814
  Transmission Date: 20171127
  Serious: No
  Sender: FDA-Public Use
  Company Number: None

PATIENT
  Age: 46 Year
  Sex: Female

DRUGS (1)
  1. REMICADE [Suspect]
     Active Substance: INFLIXIMAB
     Indication: COLITIS ULCERATIVE
     Dosage: INFUSION 5MG/KG IV Q 8 WEEKS  IV
     Route: 042
     Dates: start: 20170601, end: 20170727

REACTIONS (1)
  - Pruritus [None]

NARRATIVE: CASE EVENT DATE: 20170720
